FAERS Safety Report 10253541 (Version 1)
Quarter: 2014Q2

REPORT INFORMATION
  Report Type: Spontaneous
  Country: US (occurrence: US)
  Receive Date: 20140623
  Receipt Date: 20140623
  Transmission Date: 20141212
  Serious: No
  Sender: FDA-Public Use
  Company Number: US-ZOGENIX, INC.-2011ZX000493

PATIENT
  Sex: Male
  Weight: 94.43 kg

DRUGS (6)
  1. SUMAVEL DOSEPRO [Suspect]
     Indication: MIGRAINE
     Dates: start: 201108, end: 201108
  2. BOTOX [Concomitant]
     Indication: MIGRAINE
  3. XANAX [Concomitant]
     Indication: ANXIETY
  4. STADOL [Concomitant]
     Indication: MIGRAINE
  5. DILAUDID [Concomitant]
     Indication: MIGRAINE
  6. DEMEROL [Concomitant]
     Indication: MIGRAINE

REACTIONS (2)
  - Drug ineffective [Recovered/Resolved]
  - Injection site pain [Recovered/Resolved]
